FAERS Safety Report 8547698-4 (Version None)
Quarter: 2012Q3

REPORT INFORMATION
  Report Type: 
  Country: None (occurrence: None)
  Receive Date: 20120727
  Receipt Date: 20120426
  Transmission Date: 20120928
  Serious: No
  Sender: FDA-Public Use
  Company Number: US-ASTRAZENECA-2012SE27296

PATIENT
  Age: 44 Year
  Sex: Male

DRUGS (6)
  1. ATRILTA [Concomitant]
  2. SEROQUEL [Suspect]
     Route: 048
  3. LISINOPRIL [Concomitant]
  4. SEROQUEL [Suspect]
     Indication: BIPOLAR DISORDER
     Route: 048
     Dates: start: 20111001
  5. ATIVAN [Concomitant]
  6. KLONOPIN [Concomitant]

REACTIONS (3)
  - INSOMNIA [None]
  - DRUG INEFFECTIVE [None]
  - BIPOLAR DISORDER [None]
